FAERS Safety Report 25954148 (Version 1)
Quarter: 2025Q4

REPORT INFORMATION
  Report Type: Spontaneous
  Country: GB (occurrence: GB)
  Receive Date: 20251023
  Receipt Date: 20251023
  Transmission Date: 20260117
  Serious: Yes (Other)
  Sender: PURDUE
  Company Number: GB-NAPPMUNDI-GBR-2025-0129770

PATIENT

DRUGS (1)
  1. MORPHINE SULFATE [Suspect]
     Active Substance: MORPHINE SULFATE
     Indication: Dyspnoea
     Dosage: UNK
     Route: 065

REACTIONS (67)
  - Acute pulmonary oedema [Unknown]
  - Lower respiratory tract infection [Unknown]
  - Hallucination [Unknown]
  - Myocardial infarction [Unknown]
  - Interstitial lung disease [Unknown]
  - Pneumonia [Unknown]
  - Enterocolitis infectious [Unknown]
  - Hypokalaemia [Unknown]
  - Hypoxia [Unknown]
  - Abdominal pain [Unknown]
  - Decreased appetite [Unknown]
  - Anxiety [Unknown]
  - Back pain [Unknown]
  - Dyspnoea [Unknown]
  - Chronic obstructive pulmonary disease [Unknown]
  - COVID-19 [Unknown]
  - Cataract operation [Unknown]
  - Confusional state [Unknown]
  - Chest pain [Unknown]
  - Chills [Unknown]
  - Constipation [Unknown]
  - Dyspepsia [Unknown]
  - Frequent bowel movements [Unknown]
  - Headache [Unknown]
  - Haematoma [Unknown]
  - Brain fog [Unknown]
  - Influenza like illness [Unknown]
  - Malaise [Unknown]
  - Feeling hot [Unknown]
  - Fall [Unknown]
  - Electrolyte imbalance [Unknown]
  - Ear pain [Unknown]
  - Dyskinesia [Unknown]
  - Dry skin [Unknown]
  - Dry mouth [Unknown]
  - Disorientation [Unknown]
  - Diarrhoea [Unknown]
  - Cough [Unknown]
  - Rhinitis [Unknown]
  - Adverse drug reaction [Unknown]
  - Respiratory distress [Unknown]
  - Cognitive disorder [Unknown]
  - Vomiting [Unknown]
  - Abnormal dreams [Unknown]
  - Viral infection [Unknown]
  - Urinary tract infection [Unknown]
  - Urinary retention [Unknown]
  - Balance disorder [Unknown]
  - Fatigue [Unknown]
  - Lip swelling [Unknown]
  - Abdominal pain upper [Unknown]
  - Oropharyngeal pain [Unknown]
  - Somnolence [Unknown]
  - Skin laceration [Unknown]
  - Herpes zoster [Unknown]
  - Scleroderma [Unknown]
  - Raynaud^s phenomenon [Unknown]
  - Rash [Unknown]
  - Productive cough [Unknown]
  - Arthralgia [Unknown]
  - Nausea [Unknown]
  - Memory impairment [Unknown]
  - Dizziness [Unknown]
  - Insomnia [Unknown]
  - Off label use [Unknown]
  - Extra dose administered [Unknown]
  - Treatment noncompliance [Unknown]
